FAERS Safety Report 7713670-7 (Version None)
Quarter: 2011Q3

REPORT INFORMATION
  Report Type: 
  Country: None (occurrence: None)
  Receive Date: 20110826
  Receipt Date: 20110823
  Transmission Date: 20111222
  Serious: Yes (Death)
  Sender: FDA-Public Use
  Company Number: HU-ABBOTT-11P-076-0848894-00

PATIENT
  Age: 32 Year
  Sex: Female

DRUGS (4)
  1. MESALAMINE [Concomitant]
     Indication: PRODUCT USED FOR UNKNOWN INDICATION
     Dates: start: 20080601
  2. AZATHIOPRINE [Suspect]
     Dates: start: 20080601
  3. ADALIMUMAB [Suspect]
     Indication: CROHN'S DISEASE
     Dates: start: 20080601
  4. AZATHIOPRINE [Suspect]
     Indication: CROHN'S DISEASE
     Dates: start: 19990101

REACTIONS (1)
  - NATURAL KILLER-CELL LYMPHOBLASTIC LYMPHOMA [None]
